FAERS Safety Report 7498841-X (Version None)
Quarter: 2011Q2

REPORT INFORMATION
  Report Type: 
  Country: None (occurrence: None)
  Receive Date: 20110524
  Receipt Date: 20110510
  Transmission Date: 20111010
  Serious: Yes (Other)
  Sender: FDA-Public Use
  Company Number: US-MYLANLABS-2011S1009780

PATIENT
  Age: 83 Month

DRUGS (2)
  1. MELPHALAN HYDROCHLORIDE [Suspect]
     Indication: RETINOBLASTOMA
     Dosage: 30-MINUTE INTRA-OPHTHALMIC ARTERY INFUSION; DILUTED IN 30CC SODIUM CHLORIDE
     Route: 013
  2. HEPARIN [Concomitant]
     Indication: ANTICOAGULANT THERAPY
     Route: 040

REACTIONS (2)
  - MYOSITIS [None]
  - RETINOPATHY [None]
